FAERS Safety Report 16908946 (Version 2)
Quarter: 2019Q4

REPORT INFORMATION
  Report Type: Spontaneous
  Country: GB (occurrence: GB)
  Receive Date: 20191011
  Receipt Date: 20191205
  Transmission Date: 20200122
  Serious: Yes (Other)
  Sender: FDA-Public Use
  Company Number: GB-MYLANLABS-2019M1095456

PATIENT
  Age: 75 Year
  Sex: Male

DRUGS (3)
  1. MICONAZOLE. [Interacting]
     Active Substance: MICONAZOLE
     Indication: ORAL CANDIDIASIS
     Dosage: UNK
     Route: 061
  2. WARFARIN [Interacting]
     Active Substance: WARFARIN
     Indication: AORTIC VALVE REPLACEMENT
  3. WARFARIN [Suspect]
     Active Substance: WARFARIN
     Indication: ANTICOAGULANT THERAPY
     Dosage: UNK UNK, UNK
     Route: 065

REACTIONS (3)
  - Contusion [Unknown]
  - International normalised ratio increased [Recovered/Resolved]
  - Drug interaction [Recovered/Resolved]
